FAERS Safety Report 7211269-2 (Version None)
Quarter: 2010Q4

REPORT INFORMATION
  Report Type: 
  Country: None (occurrence: None)
  Receive Date: 20101228
  Receipt Date: 20101215
  Transmission Date: 20110411
  Serious: Yes (Hospitalization, Other)
  Sender: FDA-Public Use
  Company Number: 023950

PATIENT
  Sex: Male

DRUGS (9)
  1. ROTIGOTINE (ROTIGOTINE) [Suspect]
     Indication: PARKINSON'S DISEASE
     Dosage: 2-16 MG  DAILY, TRANSDERMAL
     Route: 062
     Dates: start: 20100309, end: 20101210
  2. BENSERAZIDE HYDROCHLORIDE W/LEVODOPA [Concomitant]
  3. ALLOPURINOL [Concomitant]
  4. VALSARTAN [Concomitant]
  5. ASPIRIN [Concomitant]
  6. ATORVASTATIN CALCIUM [Concomitant]
  7. SELEGILINE HYDROCHLORIDE [Concomitant]
  8. ENTACAPONE [Concomitant]
  9. BISOPROLOL FUMARATE [Concomitant]

REACTIONS (6)
  - DELIRIUM [None]
  - DELUSION [None]
  - HALLUCINATIONS, MIXED [None]
  - JUDGEMENT IMPAIRED [None]
  - PARANOIA [None]
  - RESTLESSNESS [None]
